FAERS Safety Report 11717635 (Version 1)
Quarter: 2015Q4

REPORT INFORMATION
  Report Type: Spontaneous
  Country: US (occurrence: US)
  Receive Date: 20151110
  Receipt Date: 20151110
  Transmission Date: 20160304
  Serious: Yes (Other)
  Sender: FDA-Public Use
  Company Number: US-009507513-1511USA003541

PATIENT
  Sex: Female

DRUGS (3)
  1. PEGINTRON [Suspect]
     Active Substance: PEGINTERFERON ALFA-2B
     Indication: HEPATITIS INFECTIOUS
     Dosage: UNK
     Dates: start: 20090528
  2. REBETOL [Suspect]
     Active Substance: RIBAVIRIN
     Indication: HEPATITIS INFECTIOUS
     Dosage: UNK
     Route: 048
     Dates: start: 20090528
  3. RIBASPHERE RIBAPAK [Suspect]
     Active Substance: RIBAVIRIN
     Indication: HEPATITIS INFECTIOUS
     Dosage: UNK
     Dates: start: 20090528

REACTIONS (13)
  - Product quality issue [Unknown]
  - Head injury [Unknown]
  - No therapeutic response [Unknown]
  - Somnolence [Unknown]
  - Weight decreased [Unknown]
  - Nerve injury [Unknown]
  - Heart rate decreased [Unknown]
  - Suicidal ideation [Unknown]
  - Pneumonia [Unknown]
  - Malaise [Unknown]
  - Fall [Unknown]
  - Seizure [Unknown]
  - Depression [Unknown]
